FAERS Safety Report 4590297-X (Version None)
Quarter: 2005Q1

REPORT INFORMATION
  Report Type: 
  Country: None (occurrence: None)
  Receive Date: 20050224
  Receipt Date: 20050215
  Transmission Date: 20050727
  Serious: Yes (Other)
  Sender: FDA-Public Use
  Company Number: PHEH2005US02068

PATIENT
  Age: 64 Year
  Sex: Female
  Weight: 45 kg

DRUGS (5)
  1. ELIDEL [Suspect]
     Indication: DERMATITIS ATOPIC
     Dosage: UNK, PRN
     Route: 061
     Dates: start: 20010101, end: 20030101
  2. PROTOPIC [Suspect]
     Dosage: UNK, QD
     Route: 061
     Dates: start: 20000101, end: 20030101
  3. ZOLOFT [Concomitant]
  4. PREMARIN [Concomitant]
  5. SYNTHROID [Concomitant]

REACTIONS (6)
  - ALOPECIA [None]
  - DRUG INEFFECTIVE [None]
  - DRY SKIN [None]
  - MYCOSIS FUNGOIDES [None]
  - PRURITUS [None]
  - SKIN ATROPHY [None]
